FAERS Safety Report 15470198 (Version 1)
Quarter: 2018Q4

REPORT INFORMATION
  Report Type: Spontaneous
  Country: IT (occurrence: IT)
  Receive Date: 20181005
  Receipt Date: 20181005
  Transmission Date: 20190205
  Serious: Yes (Life-Threatening)
  Sender: FDA-Public Use
  Company Number: IT-TEVA-2018-IT-961249

PATIENT
  Age: 59 Year
  Sex: Male

DRUGS (7)
  1. DOBETIN [Concomitant]
  2. PREFOLIC [Concomitant]
     Active Substance: LEUCOVORIN CALCIUM
  3. SINTROM [Concomitant]
     Active Substance: ACENOCOUMAROL
  4. MAALOX ANTACID [Concomitant]
     Active Substance: ALUMINUM HYDROXIDE\DIMETHICONE\MAGNESIUM HYDROXIDE
  5. CALCIO CARBONATO [Concomitant]
  6. EPOETINA ALFA [Concomitant]
  7. VANCOMYCIN [Suspect]
     Active Substance: VANCOMYCIN
     Route: 042
     Dates: start: 20080402, end: 20080402

REACTIONS (4)
  - Laryngeal oedema [Recovered/Resolved]
  - Dyspnoea [Recovered/Resolved]
  - Loss of consciousness [Recovered/Resolved]
  - Hypersensitivity [Recovered/Resolved]

NARRATIVE: CASE EVENT DATE: 20080402
